FAERS Safety Report 8609572-4 (Version None)
Quarter: 2012Q3

REPORT INFORMATION
  Report Type: 
  Country: None (occurrence: None)
  Receive Date: 20120821
  Receipt Date: 20120809
  Transmission Date: 20120928
  Serious: Yes (Other)
  Sender: FDA-Public Use
  Company Number: GB-NOVOPROD-357838

PATIENT
  Age: 52 Year
  Sex: Male
  Weight: 84 kg

DRUGS (11)
  1. AMLODIPINE [Concomitant]
  2. HYDROCORTISONE [Concomitant]
  3. SIMVASTATIN [Concomitant]
     Dosage: UNK UNK, QD
  4. AMITRIPTYLINE HYDROCHLORIDE [Concomitant]
  5. METFORMIN [Concomitant]
  6. LOSARTAN POTASSIUM [Concomitant]
  7. OMEPRAZOLE [Concomitant]
  8. ACETAMINOPHEN [Concomitant]
  9. HYDROXOCOBALAMIN [Concomitant]
  10. INSULATARD NPH HUMAN [Suspect]
     Indication: DIABETES MELLITUS
     Dosage: 12 IU, UNK
     Route: 058
     Dates: start: 20120403, end: 20120731
  11. GLICLAZIDE [Concomitant]

REACTIONS (3)
  - SKIN REACTION [None]
  - DRUG INEFFECTIVE [None]
  - PRURITUS [None]
